FAERS Safety Report 22795646 (Version 3)
Quarter: 2023Q4

REPORT INFORMATION
  Report Type: Report from Study
  Country: FR (occurrence: FR)
  Receive Date: 20230807
  Receipt Date: 20231017
  Transmission Date: 20240110
  Serious: Yes (Hospitalization)
  Sender: FDA-Public Use
  Company Number: FR-SERVIER-S23008318

PATIENT
  Age: 67 Year
  Sex: Male
  Weight: 45 kg

DRUGS (7)
  1. ONIVYDE [Suspect]
     Active Substance: IRINOTECAN HYDROCHLORIDE
     Indication: Oesophageal cancer metastatic
     Dosage: 110.94 MG
     Route: 042
     Dates: start: 20230405
  2. FLUOROURACIL [Suspect]
     Active Substance: FLUOROURACIL
     Indication: Oesophageal cancer metastatic
     Dosage: 3790 MG, OTHER
     Route: 065
     Dates: start: 20230405
  3. LEUCOVORIN [Suspect]
     Active Substance: LEUCOVORIN\LEUCOVORIN CALCIUM
     Indication: Oesophageal cancer metastatic
     Dosage: 316 MG, OTHER
     Route: 065
     Dates: start: 20230405
  4. IMOVANE [Concomitant]
     Active Substance: ZOPICLONE
     Indication: Insomnia
     Dosage: 1 DF (7.5 MG), QD
     Route: 065
     Dates: start: 20230310
  5. CARAFATE [Concomitant]
     Active Substance: SUCRALFATE
     Indication: Prophylaxis against gastrointestinal ulcer
     Dosage: 3 DF, QD
     Route: 065
     Dates: start: 20230310
  6. PRIMPERAN [Concomitant]
     Active Substance: METOCLOPRAMIDE HYDROCHLORIDE
     Indication: Nausea
     Dosage: 1 DF (10 MG), QD
     Route: 065
     Dates: start: 20230310
  7. ESOMEPRAZOLE [Concomitant]
     Active Substance: ESOMEPRAZOLE
     Indication: Prophylaxis against gastrointestinal ulcer
     Dosage: 1 DF (20 MG), QD
     Route: 065
     Dates: start: 20230315

REACTIONS (5)
  - Starvation [Recovered/Resolved]
  - Decreased appetite [Recovered/Resolved]
  - Dehydration [Recovered/Resolved]
  - Asthenia [Recovered/Resolved]
  - Renal failure [Recovered/Resolved]

NARRATIVE: CASE EVENT DATE: 20230717
